FAERS Safety Report 6172845-1 (Version None)
Quarter: 2009Q2

REPORT INFORMATION
  Report Type: 
  Country: None (occurrence: None)
  Receive Date: 20090430
  Receipt Date: 20090420
  Transmission Date: 20091009
  Serious: Yes (Other)
  Sender: FDA-Public Use
  Company Number: US-ROCHE-617146

PATIENT
  Sex: Male
  Weight: 37.6 kg

DRUGS (3)
  1. TAMIFLU [Suspect]
     Indication: INFLUENZA
     Route: 048
     Dates: start: 20090219, end: 20090220
  2. TYLENOL [Concomitant]
     Dates: start: 20090219
  3. DECONEX DMX [Concomitant]
     Indication: COUGH
     Dosage: FREQUENCY: X1, OTHER INDICATION: RUNNING NOSE
     Route: 048
     Dates: start: 20090219, end: 20090219

REACTIONS (1)
  - HALLUCINATION [None]
